FAERS Safety Report 24948837 (Version 1)
Quarter: 2025Q1

REPORT INFORMATION
  Report Type: Spontaneous
  Country: US (occurrence: None)
  Receive Date: 20250208
  Receipt Date: 20250208
  Transmission Date: 20250408
  Serious: Yes (Disabling)
  Sender: FDA-CTU
  Company Number: None

PATIENT
  Age: 37 Year
  Sex: Female
  Weight: 56.25 kg

DRUGS (10)
  1. LEVOFLOXACIN [Suspect]
     Active Substance: LEVOFLOXACIN
     Indication: Ureaplasma infection
     Dosage: OTHER QUANTITY : 7 TABLET(S);?FREQUENCY : DAILY;?
     Route: 048
     Dates: start: 20250114, end: 20250120
  2. OMEPRAZOLE [Concomitant]
     Active Substance: OMEPRAZOLE
  3. MELOXICAM [Concomitant]
     Active Substance: MELOXICAM
  4. VITAMIN C [Concomitant]
     Active Substance: ASCORBIC ACID
  5. D [Concomitant]
  6. TOCOPHEROL [Concomitant]
     Active Substance: TOCOPHEROL
  7. COLLAGEN [Concomitant]
     Active Substance: COLLAGEN
  8. HERBALS\TURMERIC [Concomitant]
     Active Substance: HERBALS\TURMERIC
  9. magnesium bisgylcinate [Concomitant]
  10. chinese herb foot soak [Concomitant]

REACTIONS (4)
  - Tendonitis [None]
  - Pain [None]
  - Gait disturbance [None]
  - Weight bearing difficulty [None]

NARRATIVE: CASE EVENT DATE: 20250124
